FAERS Safety Report 14971460 (Version 1)
Quarter: 2018Q2

REPORT INFORMATION
  Report Type: Spontaneous
  Country: FR (occurrence: FR)
  Receive Date: 20180604
  Receipt Date: 20180604
  Transmission Date: 20180711
  Serious: Yes (Hospitalization)
  Sender: FDA-Public Use
  Company Number: FR-LEADIANT BIOSCIENCES INC-2018STPI000349

PATIENT
  Age: 75 Year
  Sex: Male
  Weight: 70 kg

DRUGS (5)
  1. MATULANE [Suspect]
     Active Substance: PROCARBAZINE HYDROCHLORIDE
     Indication: HODGKIN^S DISEASE
     Dosage: 1050 MG, UNK
     Route: 048
     Dates: start: 20171121, end: 20171121
  2. NATULAN [Suspect]
     Active Substance: PROCARBAZINE HYDROCHLORIDE
     Indication: HODGKIN^S DISEASE
     Dosage: 1050 MG, UNK
     Route: 048
     Dates: start: 20171121, end: 20171121
  3. TRUXIMA [Concomitant]
     Active Substance: RITUXIMAB
     Indication: CENTRAL NERVOUS SYSTEM LYMPHOMA
     Dosage: 1050 MG, UNK
     Route: 042
     Dates: start: 20171120, end: 20171120
  4. VINCRISTINE TEVA [Concomitant]
     Active Substance: VINCRISTINE
     Indication: CENTRAL NERVOUS SYSTEM LYMPHOMA
     Dosage: 4 MG, UNK
     Route: 042
     Dates: start: 20171121, end: 20171121
  5. METHOTREXATE MYLAN [Concomitant]
     Active Substance: METHOTREXATE SODIUM
     Indication: CENTRAL NERVOUS SYSTEM LYMPHOMA
     Dosage: 12460 MG, UNK
     Route: 042
     Dates: start: 20171121, end: 20171121

REACTIONS (1)
  - Acute kidney injury [Not Recovered/Not Resolved]
